FAERS Safety Report 17077999 (Version 2)
Quarter: 2019Q4

REPORT INFORMATION
  Report Type: Spontaneous
  Country: US (occurrence: US)
  Receive Date: 20191126
  Receipt Date: 20191211
  Transmission Date: 20200122
  Serious: Yes (Hospitalization, Other)
  Sender: FDA-Public Use
  Company Number: US-TEVA-2019-US-1142740

PATIENT
  Age: 65 Year
  Sex: Female

DRUGS (9)
  1. DOXORUBICIN [Suspect]
     Active Substance: DOXORUBICIN
     Indication: BLASTIC PLASMACYTOID DENDRITIC CELL NEOPLASIA
     Dosage: WITH 20% DOSE REDUCTION BASED ON AGE
     Route: 065
  2. HYDROXYUREA. [Concomitant]
     Active Substance: HYDROXYUREA
     Indication: CONDITION AGGRAVATED
  3. CYCLOPHOSPHAMIDE. [Suspect]
     Active Substance: CYCLOPHOSPHAMIDE
     Indication: BLASTIC PLASMACYTOID DENDRITIC CELL NEOPLASIA
     Dosage: WITH 20% DOSE REDUCTION BASED ON AGE
     Route: 065
  4. DECADRON [Suspect]
     Active Substance: DEXAMETHASONE
     Indication: SWELLING FACE
  5. METHOTREXATE. [Suspect]
     Active Substance: METHOTREXATE
     Indication: BLASTIC PLASMACYTOID DENDRITIC CELL NEOPLASIA
     Route: 037
  6. DEXAMETHASONE. [Suspect]
     Active Substance: DEXAMETHASONE
     Indication: BLASTIC PLASMACYTOID DENDRITIC CELL NEOPLASIA
     Dosage: WITH 20% DOSE REDUCTION BASED ON AGE
     Route: 065
  7. HYDROXYUREA. [Concomitant]
     Active Substance: HYDROXYUREA
     Indication: LEUKOCYTOSIS
     Route: 065
  8. VINCRISTINE [Suspect]
     Active Substance: VINCRISTINE
     Indication: BLASTIC PLASMACYTOID DENDRITIC CELL NEOPLASIA
     Dosage: WITH 20% DOSE REDUCTION BASED ON AGE
     Route: 065
  9. DECADRON [Suspect]
     Active Substance: DEXAMETHASONE
     Indication: ENLARGED UVULA
     Route: 065

REACTIONS (8)
  - Febrile neutropenia [Recovering/Resolving]
  - Enlarged uvula [Recovering/Resolving]
  - Leukocytosis [Not Recovered/Not Resolved]
  - Respiratory syncytial virus infection [Unknown]
  - Disseminated intravascular coagulation [Not Recovered/Not Resolved]
  - Cellulitis [Unknown]
  - Atrial fibrillation [Recovering/Resolving]
  - Swelling face [Recovering/Resolving]
